FAERS Safety Report 20992291 (Version 1)
Quarter: 2022Q2

REPORT INFORMATION
  Report Type: Spontaneous
  Country: CN (occurrence: None)
  Receive Date: 20220622
  Receipt Date: 20220622
  Transmission Date: 20220720
  Serious: Yes (Other)
  Sender: FDA-Public Use
  Company Number: CN-ROCHE-3117784

PATIENT
  Age: 56 Year
  Sex: Female

DRUGS (21)
  1. AVASTIN [Suspect]
     Active Substance: BEVACIZUMAB
     Indication: Rectal cancer
     Dosage: MFOLFOX6 + BEVACIZUMAB FOR 3 CYCLES
     Route: 065
     Dates: start: 20200115, end: 20200310
  2. AVASTIN [Suspect]
     Active Substance: BEVACIZUMAB
     Indication: Metastases to liver
     Dosage: FOR 4 CYCLES
     Route: 065
     Dates: start: 20200513
  3. AVASTIN [Suspect]
     Active Substance: BEVACIZUMAB
     Dosage: FOR 2 CYCLES
     Route: 065
  4. FLUOROURACIL [Suspect]
     Active Substance: FLUOROURACIL
     Indication: Rectal cancer
     Dosage: MFOLFOX6 FOR 1 CYCLE
     Route: 065
     Dates: start: 20200115
  5. FLUOROURACIL [Suspect]
     Active Substance: FLUOROURACIL
     Indication: Metastases to liver
     Dosage: MFOLFOX6 + BEVACIZUMAB FOR 3 CYCLES
     Route: 065
     Dates: end: 20200310
  6. FLUOROURACIL [Suspect]
     Active Substance: FLUOROURACIL
     Dosage: MFOLFOX6 FOR 1 CYCLE
     Route: 065
     Dates: start: 20200326
  7. FLUOROURACIL [Suspect]
     Active Substance: FLUOROURACIL
     Dosage: MFOLFOX6 FOR 1 CYCLE
     Route: 065
     Dates: start: 20200513
  8. FLUOROURACIL [Suspect]
     Active Substance: FLUOROURACIL
     Dosage: MFOLFOX6 + BEVACIZUMAB  FOR 4 CYCLES
     Route: 065
  9. FLUOROURACIL [Suspect]
     Active Substance: FLUOROURACIL
     Dosage: DE GRAMONT + BEVACIZUMAB  FOR 2 CYCLES
     Route: 065
  10. LEUCOVORIN CALCIUM [Suspect]
     Active Substance: LEUCOVORIN CALCIUM
     Indication: Rectal cancer
     Dosage: MFOLFOX6 FOR 1 CYCLE
     Route: 065
     Dates: start: 20200115
  11. LEUCOVORIN CALCIUM [Suspect]
     Active Substance: LEUCOVORIN CALCIUM
     Indication: Metastases to liver
     Dosage: MFOLFOX6 + BEVACIZUMAB FOR 3 CYCLES
     Route: 065
     Dates: end: 20200310
  12. LEUCOVORIN CALCIUM [Suspect]
     Active Substance: LEUCOVORIN CALCIUM
     Dosage: MFOLFOX6 FOR 1 CYCLE
     Route: 065
     Dates: start: 20200326
  13. LEUCOVORIN CALCIUM [Suspect]
     Active Substance: LEUCOVORIN CALCIUM
     Dosage: MFOLFOX6 FOR 1 CYCLE
     Route: 065
     Dates: start: 20200513
  14. LEUCOVORIN CALCIUM [Suspect]
     Active Substance: LEUCOVORIN CALCIUM
     Dosage: MFOLFOX6 + BEVACIZUMAB  FOR 4 CYCLES
     Route: 065
  15. OXALIPLATIN [Suspect]
     Active Substance: OXALIPLATIN
     Indication: Rectal cancer
     Dosage: MFOLFOX6 FOR 1 CYCLE
     Route: 065
     Dates: start: 20200115
  16. OXALIPLATIN [Suspect]
     Active Substance: OXALIPLATIN
     Indication: Metastases to liver
     Dosage: MFOLFOX6 + BEVACIZUMAB FOR 3 CYCLES
     Route: 065
     Dates: end: 20200310
  17. OXALIPLATIN [Suspect]
     Active Substance: OXALIPLATIN
     Dosage: MFOLFOX6 FOR 1 CYCLE
     Route: 065
     Dates: start: 20200326
  18. OXALIPLATIN [Suspect]
     Active Substance: OXALIPLATIN
     Dosage: MFOLFOX6 FOR 1 CYCLE
     Route: 065
     Dates: start: 20200513
  19. OXALIPLATIN [Suspect]
     Active Substance: OXALIPLATIN
     Dosage: MFOLFOX6 + BEVACIZUMAB  FOR 4 CYCLES
     Route: 065
  20. TETRAHYDROFOLIC ACID [Concomitant]
     Active Substance: TETRAHYDROFOLIC ACID
     Indication: Rectal cancer
     Dosage: DE GRAMONT + BEVACIZUMAB  FOR 2 CYCLES
     Dates: end: 20200814
  21. TETRAHYDROFOLIC ACID [Concomitant]
     Active Substance: TETRAHYDROFOLIC ACID
     Indication: Metastases to liver

REACTIONS (3)
  - Myelosuppression [Unknown]
  - Gastrointestinal disorder [Unknown]
  - Neurotoxicity [Unknown]
